FAERS Safety Report 15428151 (Version 1)
Quarter: 2018Q3

REPORT INFORMATION
  Report Type: Report from Study
  Country: US (occurrence: US)
  Receive Date: 20180926
  Receipt Date: 20180926
  Transmission Date: 20181010
  Serious: Yes (Other)
  Sender: FDA-Public Use
  Company Number: US-ASTRAZENECA-2018SE54092

PATIENT
  Age: 26577 Day
  Sex: Male
  Weight: 77.3 kg

DRUGS (13)
  1. IMFINZI [Suspect]
     Active Substance: DURVALUMAB
     Indication: ADENOSQUAMOUS CELL LUNG CANCER
     Dosage: 10 MG/KG
     Route: 042
     Dates: start: 20180424
  2. IMFINZI [Suspect]
     Active Substance: DURVALUMAB
     Indication: ADENOSQUAMOUS CELL LUNG CANCER
     Dosage: 10 MG/KG
     Route: 042
     Dates: start: 20180506
  3. AMLODIPINE [Concomitant]
     Active Substance: AMLODIPINE BESYLATE
     Route: 048
     Dates: start: 20180302
  4. MELOXICAM. [Concomitant]
     Active Substance: MELOXICAM
     Route: 048
     Dates: start: 20180302
  5. TEMAZEPAM. [Concomitant]
     Active Substance: TEMAZEPAM
     Route: 048
     Dates: start: 20180302
  6. LOSARTAN HYDROCHLOROTHIAZIDE [Concomitant]
     Active Substance: HYDROCHLOROTHIAZIDE\LOSARTAN POTASSIUM
     Dosage: 100 MG+25 MG
     Route: 048
     Dates: start: 20180313
  7. NS FLUSH [Concomitant]
     Dates: start: 20180410
  8. LORAZEPAM. [Concomitant]
     Active Substance: LORAZEPAM
     Route: 048
     Dates: start: 20180313
  9. IMFINZI [Suspect]
     Active Substance: DURVALUMAB
     Indication: ADENOSQUAMOUS CELL LUNG CANCER
     Dosage: 10 MG/KG
     Route: 042
     Dates: start: 20180522
  10. ALBUTEROL. [Concomitant]
     Active Substance: ALBUTEROL
  11. IMFINZI [Suspect]
     Active Substance: DURVALUMAB
     Indication: ADENOSQUAMOUS CELL LUNG CANCER
     Dosage: 10 MG/KG
     Route: 042
     Dates: start: 20180508
  12. IMFINZI [Suspect]
     Active Substance: DURVALUMAB
     Indication: ADENOSQUAMOUS CELL LUNG CANCER
     Dosage: 10 MG/KG
     Route: 042
     Dates: start: 20180410
  13. HEPARIN [Concomitant]
     Active Substance: HEPARIN SODIUM
     Dates: start: 20180410

REACTIONS (22)
  - Peripheral arterial occlusive disease [Unknown]
  - Diarrhoea [Unknown]
  - Memory impairment [Unknown]
  - Nausea [Recovered/Resolved]
  - Dehydration [Unknown]
  - Productive cough [Unknown]
  - Limb injury [Unknown]
  - Asthenia [Unknown]
  - Depressed mood [Unknown]
  - Colitis [Unknown]
  - Infusion site pain [Unknown]
  - Malaise [Recovering/Resolving]
  - Feeling abnormal [Recovering/Resolving]
  - Hypotension [Unknown]
  - Pain [Unknown]
  - Fall [Unknown]
  - Deafness [Unknown]
  - Dyspnoea [Recovering/Resolving]
  - Abdominal pain upper [Not Recovered/Not Resolved]
  - Increased appetite [Unknown]
  - Chronic obstructive pulmonary disease [Unknown]
  - Weight increased [Unknown]

NARRATIVE: CASE EVENT DATE: 20180411
